FAERS Safety Report 17203938 (Version 2)
Quarter: 2020Q1

REPORT INFORMATION
  Report Type: Spontaneous
  Country: SK (occurrence: SK)
  Receive Date: 20191226
  Receipt Date: 20200123
  Transmission Date: 20200409
  Serious: Yes (Hospitalization, Other)
  Sender: FDA-Public Use
  Company Number: SK-SA-2019SA350675

PATIENT
  Age: 31 Year
  Sex: Female

DRUGS (4)
  1. LEMTRADA [Suspect]
     Active Substance: ALEMTUZUMAB
     Indication: MULTIPLE SCLEROSIS
     Dosage: UNK, QD
     Route: 041
     Dates: start: 20191209, end: 20191211
  2. OMEPRAZOLE. [Concomitant]
     Active Substance: OMEPRAZOLE
     Dosage: 1-0-0
     Route: 065
  3. FRAXIPARIN [Concomitant]
     Active Substance: NADROPARIN CALCIUM
     Dosage: 0.3 ML
     Route: 058
  4. TELVIRAN [Concomitant]
     Dosage: 1/2-0-1/2
     Route: 065

REACTIONS (6)
  - Pulmonary hypertension [Recovering/Resolving]
  - Dyspnoea [Recovering/Resolving]
  - Chest pain [Recovering/Resolving]
  - Chest discomfort [Recovering/Resolving]
  - Sinus bradycardia [Recovering/Resolving]
  - Hepatic congestion [Unknown]

NARRATIVE: CASE EVENT DATE: 20191211
